FAERS Safety Report 7715050-7 (Version None)
Quarter: 2011Q3

REPORT INFORMATION
  Report Type: 
  Country: None (occurrence: None)
  Receive Date: 20110829
  Receipt Date: 20110422
  Transmission Date: 20111222
  Serious: No
  Sender: FDA-Public Use
  Company Number: US-ASTRAZENECA-2011SE23376

PATIENT
  Sex: Female

DRUGS (2)
  1. VIMOVO [Suspect]
     Dosage: 500/20 MG
     Route: 048
  2. CELEBREX [Suspect]
     Route: 065

REACTIONS (3)
  - OEDEMA PERIPHERAL [None]
  - ARTHRALGIA [None]
  - PAIN [None]
